FAERS Safety Report 5042651-X (Version None)
Quarter: 2006Q3

REPORT INFORMATION
  Report Type: 
  Country: None (occurrence: None)
  Receive Date: 20060705
  Receipt Date: 20060621
  Transmission Date: 20061208
  Serious: Yes (Hospitalization)
  Sender: FDA-Public Use
  Company Number: FR-SANOFI-SYNTHELABO-A02200601623

PATIENT
  Age: 59 Year
  Sex: Male

DRUGS (6)
  1. CAMPTOSAR [Suspect]
     Indication: COLON CANCER
     Dosage: 305 MG
     Route: 042
     Dates: start: 20051206
  2. AVASTIN [Suspect]
     Indication: COLON CANCER
     Dosage: 300 MG
     Route: 042
     Dates: start: 20051206, end: 20060418
  3. SOPHIDONE [Suspect]
     Indication: DRUG USE FOR UNKNOWN INDICATION
     Dosage: 1 DF
     Route: 048
     Dates: start: 20020101
  4. FLUOROURACIL [Suspect]
     Dosage: UNK
     Route: 042
  5. STILNOX [Suspect]
     Indication: DRUG USE FOR UNKNOWN INDICATION
     Dosage: UNK
     Route: 048
  6. CALCIUM FOLINATE [Concomitant]
     Indication: COLON CANCER
     Dosage: UNK
     Route: 042
     Dates: start: 20051201

REACTIONS (5)
  - CEREBROVASCULAR ACCIDENT [None]
  - CONVULSION [None]
  - DIPLOPIA [None]
  - EPILEPSY [None]
  - LOSS OF CONSCIOUSNESS [None]
